FAERS Safety Report 19768802 (Version 2)
Quarter: 2021Q3

REPORT INFORMATION
  Report Type: Spontaneous
  Country: PL (occurrence: PL)
  Receive Date: 20210830
  Receipt Date: 20210903
  Transmission Date: 20211014
  Serious: Yes (Death, Other)
  Sender: FDA-Public Use
  Company Number: PL-CELLTRION INC.-2021PL011701

PATIENT

DRUGS (5)
  1. 2?CHLORODEOXYADENOSINE [Suspect]
     Active Substance: CLADRIBINE
     Indication: HAIRY CELL LEUKAEMIA
     Dosage: 0.12 MG/KG, DAILY FOR FIVE DAYS EACH
     Route: 042
     Dates: start: 199410, end: 201305
  2. RITUXIMAB. [Suspect]
     Active Substance: RITUXIMAB
     Indication: HAIRY CELL LEUKAEMIA
     Dosage: 375 MG/M2, DAILY, ONE DOSE
     Route: 042
  3. MOXETUMOMAB PASUDOTOX. [Suspect]
     Active Substance: MOXETUMOMAB PASUDOTOX
     Indication: HAIRY CELL LEUKAEMIA
     Dosage: 40 UG/KG IV 3 EVERY 28 D FOR 6
     Route: 042
     Dates: start: 201601
  4. FILGRASTIM [Suspect]
     Active Substance: FILGRASTIM
     Indication: HAIRY CELL LEUKAEMIA
     Dosage: UNK
  5. VEMURAFENIB. [Suspect]
     Active Substance: VEMURAFENIB
     Indication: HAIRY CELL LEUKAEMIA
     Dosage: 960 MG BID FOR THREE WEEKS
     Route: 048

REACTIONS (6)
  - Multiple organ dysfunction syndrome [Fatal]
  - Pseudomonas infection [Fatal]
  - Off label use [Unknown]
  - Pneumonia [Fatal]
  - Neutrophil count decreased [Fatal]
  - Septic shock [Fatal]
